FAERS Safety Report 6672737-5 (Version None)
Quarter: 2010Q2

REPORT INFORMATION
  Report Type: 
  Country: None (occurrence: None)
  Receive Date: 20100406
  Receipt Date: 20100322
  Transmission Date: 20101027
  Serious: Yes (Hospitalization)
  Sender: FDA-Public Use
  Company Number: 2010AM001544

PATIENT
  Age: 51 Year
  Sex: Female
  Weight: 163.2949 kg

DRUGS (4)
  1. SYMLIN [Suspect]
     Indication: TYPE 2 DIABETES MELLITUS
     Dosage: 60 MCG;TID;SC, 15 MCG;TID;SC, 15 MCG;TID;SC
     Route: 058
     Dates: start: 20070101, end: 20070101
  2. SYMLIN [Suspect]
     Indication: TYPE 2 DIABETES MELLITUS
     Dosage: 60 MCG;TID;SC, 15 MCG;TID;SC, 15 MCG;TID;SC
     Route: 058
     Dates: start: 20080101, end: 20080101
  3. SYMLIN [Suspect]
     Indication: TYPE 2 DIABETES MELLITUS
     Dosage: 60 MCG;TID;SC, 15 MCG;TID;SC, 15 MCG;TID;SC
     Route: 058
     Dates: start: 20100218
  4. NOVOLOG [Concomitant]

REACTIONS (7)
  - DECREASED APPETITE [None]
  - DEHYDRATION [None]
  - HEADACHE [None]
  - NAUSEA [None]
  - RENAL FAILURE ACUTE [None]
  - VOMITING [None]
  - WEIGHT DECREASED [None]
